FAERS Safety Report 23162263 (Version 4)
Quarter: 2023Q4

REPORT INFORMATION
  Report Type: Spontaneous
  Country: US (occurrence: US)
  Receive Date: 20231109
  Receipt Date: 20231209
  Transmission Date: 20240110
  Serious: No
  Sender: FDA-Public Use
  Company Number: US-SA-SAC20231101001547

PATIENT
  Age: 55 Year
  Sex: Female

DRUGS (2)
  1. DUPIXENT [Suspect]
     Active Substance: DUPILUMAB
     Indication: Dermatitis atopic
     Dosage: 600 MG, 1X
     Route: 058
     Dates: start: 20230915, end: 20230915
  2. DUPIXENT [Suspect]
     Active Substance: DUPILUMAB
     Dosage: 300 MG, QOW
     Route: 058
     Dates: start: 20230930

REACTIONS (9)
  - Rebound atopic dermatitis [Unknown]
  - Rash [Recovered/Resolved]
  - Skin exfoliation [Unknown]
  - Product dose omission issue [Unknown]
  - Oral herpes [Unknown]
  - Injection site bruising [Not Recovered/Not Resolved]
  - Injection site pain [Unknown]
  - Drug dose omission by device [Unknown]
  - Complication associated with device [Unknown]

NARRATIVE: CASE EVENT DATE: 20230101
